FAERS Safety Report 11137963 (Version 1)
Quarter: 2015Q2

REPORT INFORMATION
  Report Type: Spontaneous
  Country: DE (occurrence: DE)
  Receive Date: 20150526
  Receipt Date: 20150526
  Transmission Date: 20150821
  Serious: Yes (Hospitalization)
  Sender: FDA-Public Use
  Company Number: PHHY2014DE115043

PATIENT
  Age: 67 Year
  Sex: Female

DRUGS (1)
  1. ULTIBRO BREEZHALER [Suspect]
     Active Substance: GLYCOPYRRONIUM\INDACATEROL
     Indication: CHRONIC OBSTRUCTIVE PULMONARY DISEASE
     Dosage: 1 DF, QD
     Dates: start: 20140205, end: 20140828

REACTIONS (4)
  - Swelling face [Unknown]
  - Erythema [Unknown]
  - Increased tendency to bruise [Unknown]
  - Eye swelling [Unknown]

NARRATIVE: CASE EVENT DATE: 20140405
